FAERS Safety Report 8503093-5 (Version None)
Quarter: 2012Q3

REPORT INFORMATION
  Report Type: 
  Country: None (occurrence: None)
  Receive Date: 20120711
  Receipt Date: 20120703
  Transmission Date: 20120928
  Serious: Yes (Death, Hospitalization)
  Sender: FDA-Public Use
  Company Number: US-ELI_LILLY_AND_COMPANY-US201207001483

PATIENT
  Sex: Female

DRUGS (9)
  1. ADVAIR DISKUS 100/50 [Concomitant]
     Dosage: UNK
  2. LISINOPRIL [Concomitant]
     Dosage: 5 MG, UNK
  3. FORTEO [Suspect]
     Indication: OSTEOPOROSIS
     Dosage: 20 UG, QD
     Dates: start: 20120523, end: 20120524
  4. OXYCODONE HCL [Concomitant]
     Dosage: 5 MG, EVERY 4 HRS
  5. LORAZEPAM [Concomitant]
     Dosage: 5 MG, TID
  6. HUMALOG [Concomitant]
     Dosage: 5 U, TID
  7. LANTUS [Concomitant]
     Dosage: 10 U, EACH EVENING
  8. ERYTHROMYCIN [Concomitant]
     Dosage: 250 MG, QD
  9. BUPROPION HCL [Concomitant]
     Dosage: 150 MG, BID

REACTIONS (6)
  - DIZZINESS [None]
  - DYSPNOEA [None]
  - DEATH [None]
  - HALLUCINATION [None]
  - WHEEZING [None]
  - FALL [None]
